FAERS Safety Report 26150992 (Version 1)
Quarter: 2025Q4

REPORT INFORMATION
  Report Type: Spontaneous
  Country: US (occurrence: US)
  Receive Date: 20251212
  Receipt Date: 20251212
  Transmission Date: 20260117
  Serious: No
  Sender: ELI LILLY AND COMPANY
  Company Number: US-ELI_LILLY_AND_COMPANY-US202512008140

PATIENT
  Age: 67 Year
  Sex: Female

DRUGS (2)
  1. ZEPBOUND [Suspect]
     Active Substance: TIRZEPATIDE
     Indication: Weight control
     Dosage: 10 MG, UNKNOWN
     Route: 065
     Dates: start: 20251108
  2. CALCITRIOL [Suspect]
     Active Substance: CALCITRIOL
     Indication: Product used for unknown indication
     Dosage: UNK, UNKNOWN
     Route: 065

REACTIONS (2)
  - Anxiety [Unknown]
  - Depression [Unknown]
